FAERS Safety Report 7575590-0 (Version None)
Quarter: 2011Q2

REPORT INFORMATION
  Report Type: 
  Country: None (occurrence: None)
  Receive Date: 20110627
  Receipt Date: 20110623
  Transmission Date: 20111010
  Serious: Yes (Hospitalization)
  Sender: FDA-Public Use
  Company Number: US-UCBSA-009108

PATIENT
  Sex: Female
  Weight: 72 kg

DRUGS (6)
  1. RIFAXIMIN [Concomitant]
  2. CIMZIA [Suspect]
     Indication: CROHN'S DISEASE
     Route: 058
     Dates: start: 20090306
  3. SULFASALAZINE [Concomitant]
  4. VANCOMYCIN [Concomitant]
  5. PREDNISONE [Concomitant]
     Dates: start: 19990101
  6. FLAGYL [Concomitant]

REACTIONS (1)
  - CLOSTRIDIAL INFECTION [None]
